FAERS Safety Report 6723265-X (Version None)
Quarter: 2010Q2

REPORT INFORMATION
  Report Type: 
  Country: None (occurrence: None)
  Receive Date: 20100511
  Receipt Date: 20100420
  Transmission Date: 20101027
  Serious: Yes (Other)
  Sender: FDA-Public Use
  Company Number: JP-SOLVAY-00310002330

PATIENT

DRUGS (1)
  1. LUVOX [Suspect]
     Indication: DEPRESSION
     Dosage: 250 MILLIGRAM (S)
     Route: 048

REACTIONS (2)
  - INTENTIONAL OVERDOSE [None]
  - SUICIDAL IDEATION [None]
